FAERS Safety Report 9532570 (Version 1)
Quarter: 2013Q2

REPORT INFORMATION
  Report Type: Spontaneous
  Country: US (occurrence: None)
  Receive Date: 20130418
  Receipt Date: 20130418
  Transmission Date: 20140414
  Serious: No
  Sender: FDA-Public Use
  Company Number: 2013PROUSA02462

PATIENT
  Age: 74 Year
  Sex: Male
  Weight: 75.3 kg

DRUGS (4)
  1. PROVENGE (SIPULEUCEL-T) SUSPENSION, 250ML [Suspect]
     Indication: PROSTATE CANCER METASTATIC
     Dosage: SINGLE
     Route: 042
     Dates: start: 20121217, end: 20121217
  2. SOTALOL (SOTALOL HYDROCHLORIDE) [Concomitant]
  3. FINASTERIDE [Concomitant]
  4. ASPIRIN (ACETYLSALICYLIC ACID) [Concomitant]

REACTIONS (1)
  - Gastritis viral [None]
